FAERS Safety Report 4986254-1 (Version None)
Quarter: 2006Q2

REPORT INFORMATION
  Report Type: 
  Country: None (occurrence: None)
  Receive Date: 20060428
  Receipt Date: 20060412
  Transmission Date: 20061013
  Serious: Yes (Hospitalization)
  Sender: FDA-Public Use
  Company Number: FR-GLAXOSMITHKLINE-B0421281A

PATIENT
  Age: 44 Year
  Sex: Male
  Weight: 100 kg

DRUGS (2)
  1. NIQUITIN CQ CLEAR 21MG [Suspect]
     Route: 062
     Dates: start: 20050702, end: 20050901
  2. NIQUITIN CQ CLEAR 21MG [Suspect]
     Route: 062
     Dates: start: 20060102, end: 20060301

REACTIONS (1)
  - PERICARDITIS [None]
